FAERS Safety Report 9493661 (Version 1)
Quarter: 2013Q3

REPORT INFORMATION
  Report Type: Spontaneous
  Country: US (occurrence: US)
  Receive Date: 20130902
  Receipt Date: 20130902
  Transmission Date: 20140515
  Serious: Yes (Other)
  Sender: FDA-Public Use
  Company Number: US-JNJFOC-20130815094

PATIENT
  Age: 36 Year
  Sex: Female

DRUGS (2)
  1. INVEGA SUSTENNA [Suspect]
     Indication: BIPOLAR DISORDER
     Route: 030
     Dates: end: 20130808
  2. DEPAKOTE [Concomitant]
     Route: 065

REACTIONS (3)
  - Diplopia [Not Recovered/Not Resolved]
  - Urinary retention [Not Recovered/Not Resolved]
  - Pyrexia [Not Recovered/Not Resolved]
